FAERS Safety Report 14206849 (Version 3)
Quarter: 2017Q4

REPORT INFORMATION
  Report Type: Report from Study
  Country: US (occurrence: US)
  Receive Date: 20171121
  Receipt Date: 20171219
  Transmission Date: 20180321
  Serious: Yes (Death, Hospitalization)
  Sender: FDA-Public Use
  Company Number: US-ROCHE-2016477

PATIENT
  Age: 88 Year
  Sex: Female

DRUGS (11)
  1. PACLITAXEL. [Suspect]
     Active Substance: PACLITAXEL
     Indication: ANAPLASTIC THYROID CANCER
     Route: 042
     Dates: start: 20170812
  2. TYLENOL #3 (UNITED STATES) [Concomitant]
  3. DILTIAZEM. [Concomitant]
     Active Substance: DILTIAZEM
  4. ATEZOLIZUMAB. [Suspect]
     Active Substance: ATEZOLIZUMAB
     Indication: ANAPLASTIC THYROID CANCER
     Route: 042
     Dates: start: 20170812
  5. ELIQUIS [Concomitant]
     Active Substance: APIXABAN
  6. DIGOXIN. [Concomitant]
     Active Substance: DIGOXIN
  7. TRAMADOL. [Concomitant]
     Active Substance: TRAMADOL
  8. LASIX [Concomitant]
     Active Substance: FUROSEMIDE
  9. AMBIEN [Concomitant]
     Active Substance: ZOLPIDEM TARTRATE
  10. LEVOTHYROXINE. [Concomitant]
     Active Substance: LEVOTHYROXINE
  11. FAMOTIDINE. [Concomitant]
     Active Substance: FAMOTIDINE

REACTIONS (5)
  - Urinary tract infection [Recovered/Resolved]
  - Pain [Unknown]
  - Constipation [Unknown]
  - Disease progression [Fatal]
  - Muscular weakness [Unknown]

NARRATIVE: CASE EVENT DATE: 20171023
